FAERS Safety Report 21757117 (Version 1)
Quarter: 2022Q4

REPORT INFORMATION
  Report Type: Spontaneous
  Country: US (occurrence: US)
  Receive Date: 20221220
  Receipt Date: 20221220
  Transmission Date: 20230113
  Serious: Yes (Other)
  Sender: FDA-Public Use
  Company Number: US-SUNOVION-2022SUN003465

PATIENT
  Sex: Female

DRUGS (1)
  1. KYNMOBI [Suspect]
     Active Substance: APOMORPHINE HYDROCHLORIDE
     Indication: Parkinson^s disease
     Dosage: 15 MG, 1-2 TIMES A DAY
     Route: 060
     Dates: end: 20221215

REACTIONS (4)
  - Hallucination, visual [Recovered/Resolved]
  - Feeding disorder [Not Recovered/Not Resolved]
  - Oral herpes [Not Recovered/Not Resolved]
  - Speech disorder [Unknown]
